FAERS Safety Report 5664725-2 (Version None)
Quarter: 2008Q1

REPORT INFORMATION
  Report Type: 
  Country: None (occurrence: None)
  Receive Date: 20080314
  Receipt Date: 20080311
  Transmission Date: 20080703
  Serious: Yes (Death)
  Sender: FDA-Public Use
  Company Number: DE-BRISTOL-MYERS SQUIBB COMPANY-13964333

PATIENT
  Age: 31 Year
  Sex: Male
  Weight: 100 kg

DRUGS (4)
  1. ABILIFY [Suspect]
     Indication: DELUSIONAL DISORDER, PERSECUTORY TYPE
     Dosage: 15 MG/D PO FROM 13SEP07-17SEP07, 30 MG/D PO FROM 18SEP07
     Route: 048
     Dates: start: 20070913
  2. DIAZEPAM [Suspect]
     Indication: TENSION
     Dosage: 30 MG PO FROM 14SEP07-18SEP07 AND 35 MG/DAY PO SINCE 19SEP07
     Route: 048
     Dates: start: 20070914
  3. PERAZINE [Suspect]
     Indication: DELUSIONAL DISORDER, PERSECUTORY TYPE
     Dosage: 150 MG PO FROM 23AUG07-19SEP07.
     Route: 048
     Dates: start: 20070920
  4. ALLOPURINOL [Suspect]
     Indication: GOUT
     Route: 048
     Dates: start: 20070827

REACTIONS (1)
  - SUDDEN CARDIAC DEATH [None]
